FAERS Safety Report 4427562-2 (Version None)
Quarter: 2004Q3

REPORT INFORMATION
  Report Type: 
  Country: None (occurrence: None)
  Receive Date: 20040812
  Receipt Date: 20040730
  Transmission Date: 20050211
  Serious: Yes (Life-Threatening, Hospitalization)
  Sender: FDA-Public Use
  Company Number: HQWYE773129JUN04

PATIENT
  Age: 81 Year
  Sex: Female

DRUGS (7)
  1. CORDAREX (AMIODARONE, UNSPEC) [Suspect]
     Indication: ARRHYTHMIA
     Dosage: 1200 MG 1X PER 1 DAY
     Dates: start: 20040524, end: 20040530
  2. CORDAREX (AMIODARONE, UNSPEC) [Suspect]
     Indication: ATRIAL FIBRILLATION
     Dosage: 1200 MG 1X PER 1 DAY
     Dates: start: 20040524, end: 20040530
  3. CORDAREX (AMIODARONE, TABLET) [Suspect]
     Indication: ARRHYTHMIA
     Dosage: 200 MG 1X PER 1 DAY ORAL
     Route: 048
     Dates: start: 20040601, end: 20040616
  4. CORDAREX (AMIODARONE, TABLET) [Suspect]
     Indication: ATRIAL FIBRILLATION
     Dosage: 200 MG 1X PER 1 DAY ORAL
     Route: 048
     Dates: start: 20040601, end: 20040616
  5. DIURETIC (DIURETIC) [Concomitant]
  6. MORPHINE [Concomitant]
  7. CORTICOSTEROID NOS (CORTICOSTEROID NOS) [Concomitant]

REACTIONS (13)
  - ACUTE RESPIRATORY DISTRESS SYNDROME [None]
  - ANAEMIA [None]
  - BRAIN NATRIURETIC PEPTIDE INCREASED [None]
  - CLOSTRIDIUM COLITIS [None]
  - DIABETES MELLITUS [None]
  - ESCHERICHIA INFECTION [None]
  - HAEMODIALYSIS [None]
  - PATHOGEN RESISTANCE [None]
  - PNEUMONITIS [None]
  - PULMONARY HAEMORRHAGE [None]
  - RENAL ARTERY STENOSIS [None]
  - RENAL FAILURE [None]
  - STAPHYLOCOCCAL INFECTION [None]
